FAERS Safety Report 6815128-6 (Version None)
Quarter: 2010Q2

REPORT INFORMATION
  Report Type: 
  Country: None (occurrence: None)
  Receive Date: 20100630
  Receipt Date: 20100630
  Transmission Date: 20101027
  Serious: Yes (Hospitalization)
  Sender: FDA-Public Use
  Company Number: None

PATIENT
  Sex: Male
  Weight: 88.2 kg

DRUGS (15)
  1. SUTENT [Suspect]
     Indication: BLADDER CANCER
     Dosage: 37.5 MG DAILY ORAL
     Route: 048
     Dates: start: 20100318, end: 20100609
  2. LOPERAMIDE [Concomitant]
  3. HYDRALAZINE HCL [Concomitant]
  4. LISINOPRIL -HTCZ [Concomitant]
  5. COLACE [Concomitant]
  6. FERROUS SULFATE [Concomitant]
  7. AGGRENOX [Concomitant]
  8. ALLOPURINOL [Concomitant]
  9. ACTOS [Concomitant]
  10. COLCHICINE [Concomitant]
  11. MINOCYCLINE [Concomitant]
  12. NIFEDIAC [Concomitant]
  13. ZETIA [Concomitant]
  14. COSOPT [Concomitant]
  15. LUMIGAN [Concomitant]

REACTIONS (5)
  - ANAEMIA [None]
  - DEVICE OCCLUSION [None]
  - POST PROCEDURAL HAEMATURIA [None]
  - THROMBOSIS IN DEVICE [None]
  - URINARY RETENTION [None]
